FAERS Safety Report 16367609 (Version 1)
Quarter: 2019Q2

REPORT INFORMATION
  Report Type: Spontaneous
  Country: ES (occurrence: ES)
  Receive Date: 20190529
  Receipt Date: 20190529
  Transmission Date: 20190711
  Serious: Yes (Hospitalization)
  Sender: FDA-Public Use
  Company Number: ES-IRONWOOD PHARMACEUTICALS, INC.-IRWD2019001751

PATIENT

DRUGS (2)
  1. ZURAMPIC [Suspect]
     Active Substance: LESINURAD
     Indication: GOUT
     Dosage: 200 MG, 1/DAY
     Route: 048
     Dates: start: 201904
  2. FEBUXOSTAT. [Concomitant]
     Active Substance: FEBUXOSTAT
     Indication: GOUT
     Dosage: UNK
     Route: 065

REACTIONS (3)
  - Infected fistula [Not Recovered/Not Resolved]
  - Fistula [Not Recovered/Not Resolved]
  - Fistula inflammation [Not Recovered/Not Resolved]

NARRATIVE: CASE EVENT DATE: 20190516
